FAERS Safety Report 12173489 (Version 3)
Quarter: 2016Q1

REPORT INFORMATION
  Report Type: Spontaneous
  Country: US (occurrence: US)
  Receive Date: 20160311
  Receipt Date: 20160317
  Transmission Date: 20160526
  Serious: No
  Sender: FDA-Public Use
  Company Number: US-GALDERMA-US15000618

PATIENT
  Age: 58 Year
  Sex: Female

DRUGS (2)
  1. TRI-LUMA [Suspect]
     Active Substance: FLUOCINOLONE ACETONIDE\HYDROQUINONE\TRETINOIN
     Indication: SOLAR LENTIGO
     Route: 061
     Dates: start: 201411, end: 201501
  2. UNKNOWN MILD FACE WASH [Concomitant]
     Indication: THERAPEUTIC SKIN CARE TOPICAL

REACTIONS (3)
  - Incorrect product storage [Recovered/Resolved]
  - Product use issue [Recovered/Resolved]
  - Rebound effect [Not Recovered/Not Resolved]

NARRATIVE: CASE EVENT DATE: 201501
